FAERS Safety Report 4375965-7 (Version None)
Quarter: 2004Q2

REPORT INFORMATION
  Report Type: 
  Country: None (occurrence: None)
  Receive Date: 20040607
  Receipt Date: 20040524
  Transmission Date: 20050107
  Serious: Yes (Hospitalization, Other)
  Sender: FDA-Public Use
  Company Number: HQWYE162303FEB03

PATIENT
  Age: 21 Year
  Sex: Female

DRUGS (2)
  1. GESTODENE AND ETHINYL ESTRADIOL [Suspect]
     Indication: CONTRACEPTION
     Dosage: PATIENT IN SCREENING
     Route: 062
  2. TRIQUILAR (LEVONORGESTREL/ETHINYL ESTRADIOL, TABLET) [Suspect]
     Indication: ORAL CONTRACEPTION
     Dosage: ORAL
     Route: 048

REACTIONS (3)
  - DEEP VEIN THROMBOSIS [None]
  - DYSPNOEA [None]
  - PRODUCTIVE COUGH [None]
